FAERS Safety Report 9512510 (Version 1)
Quarter: 2013Q3

REPORT INFORMATION
  Report Type: Spontaneous
  Country: HU (occurrence: HU)
  Receive Date: 20130910
  Receipt Date: 20130910
  Transmission Date: 20140515
  Serious: Yes (Hospitalization, Other)
  Sender: FDA-Public Use
  Company Number: HU-TEVA-429797ISR

PATIENT
  Age: 77 Year
  Sex: Female

DRUGS (1)
  1. CLOPIDOGREL [Suspect]
     Indication: ANTICOAGULANT THERAPY

REACTIONS (4)
  - Vaginal haemorrhage [Recovered/Resolved]
  - Chest pain [Unknown]
  - Palpitations [Unknown]
  - Haematuria [Unknown]
